FAERS Safety Report 20092576 (Version 2)
Quarter: 2022Q1

REPORT INFORMATION
  Report Type: Spontaneous
  Country: GT (occurrence: GT)
  Receive Date: 20211119
  Receipt Date: 20220117
  Transmission Date: 20220423
  Serious: Yes (Other)
  Sender: FDA-Public Use
  Company Number: GT-BAXTER-2021BAX035904

PATIENT
  Age: 49 Year
  Sex: Female

DRUGS (2)
  1. SODIUM CHLORIDE [Suspect]
     Active Substance: SODIUM CHLORIDE
     Indication: Hyponatraemia
     Dosage: TWICE WITH A RISE TO 112MMOL/L.
     Route: 040
  2. SODIUM CHLORIDE [Suspect]
     Active Substance: SODIUM CHLORIDE
     Dosage: 24-HOUR INFUSION HYPERTONIC SOLUTION REACHING A RISE OF 119MMOL/L IN 48 HOURS
     Route: 050

REACTIONS (2)
  - Hyperkalaemia [Unknown]
  - Hypervolaemia [Recovering/Resolving]
